FAERS Safety Report 4834787-0 (Version None)
Quarter: 2005Q4

REPORT INFORMATION
  Report Type: 
  Country: None (occurrence: None)
  Receive Date: 20051122
  Receipt Date: 20051007
  Transmission Date: 20060501
  Serious: Yes (Other)
  Sender: FDA-Public Use
  Company Number: PHBS2005NZ14758

PATIENT
  Age: 34 Year
  Sex: Female

DRUGS (2)
  1. TEGRETOL [Suspect]
     Indication: EPILEPSY
     Dosage: UNK, UNK
     Route: 048
     Dates: start: 19860601
  2. EPILIM [Concomitant]
     Dates: start: 19840101

REACTIONS (1)
  - HEPATITIS C [None]
